FAERS Safety Report 9338965 (Version 1)
Quarter: 2013Q2

REPORT INFORMATION
  Report Type: Spontaneous
  Country: US (occurrence: None)
  Receive Date: 20130606
  Receipt Date: 20130606
  Transmission Date: 20140414
  Serious: Yes (Other)
  Sender: FDA-Public Use
  Company Number: None

PATIENT
  Age: 48 Year
  Sex: Male
  Weight: 102.06 kg

DRUGS (1)
  1. BAYER ASPIRIN [Suspect]
     Indication: HEADACHE
     Dosage: LOW DOSE; 1 PILL

REACTIONS (1)
  - Blindness transient [None]
